FAERS Safety Report 6436573-7 (Version None)
Quarter: 2009Q4

REPORT INFORMATION
  Report Type: 
  Country: None (occurrence: None)
  Receive Date: 20091111
  Receipt Date: 20091030
  Transmission Date: 20100525
  Serious: Yes (Hospitalization, Other)
  Sender: FDA-Public Use
  Company Number: US-ELI_LILLY_AND_COMPANY-US200909001743

PATIENT
  Age: 70 Year
  Sex: Female

DRUGS (2)
  1. FORTEO [Suspect]
     Indication: OSTEOPOROSIS
     Dosage: UNK, UNK
     Dates: end: 20090101
  2. FORTEO [Suspect]
     Dosage: UNK, UNK
     Dates: start: 20090901

REACTIONS (3)
  - ANXIETY [None]
  - HAEMORRHAGE [None]
  - OESOPHAGITIS [None]
